FAERS Safety Report 18249246 (Version 1)
Quarter: 2020Q3

REPORT INFORMATION
  Report Type: Spontaneous
  Country: RU (occurrence: RU)
  Receive Date: 20200909
  Receipt Date: 20200909
  Transmission Date: 20201103
  Serious: Yes (Hospitalization, Other)
  Sender: FDA-Public Use
  Company Number: RU-AMGEN-RUSSP2020144160

PATIENT
  Age: 76 Year
  Sex: Female
  Weight: 57 kg

DRUGS (7)
  1. CALCIUM D3 NYCOMED FORTE [Concomitant]
     Indication: OSTEOPOROSIS
     Dosage: 2 MILLIGRAM, QD
     Route: 048
  2. ALFA?D3 [Concomitant]
     Indication: OSTEOPOROSIS
     Dosage: 1 MICROGRAM, QD
     Route: 048
  3. ENALAPRIL [Concomitant]
     Active Substance: ENALAPRIL
     Indication: MYOCARDIAL ISCHAEMIA
     Dosage: 10 MILLIGRAM, QD
     Route: 048
  4. BETALOK [Concomitant]
     Active Substance: METOPROLOL SUCCINATE
     Indication: MYOCARDIAL ISCHAEMIA
     Dosage: 50 MILLIGRAM, QD
     Route: 048
  5. METIPRED [METHYLPREDNISOLONE] [Concomitant]
     Indication: RHEUMATOID ARTHRITIS
     Dosage: 4 MILLIGRAM, QOD
     Route: 048
  6. PROLIA [Suspect]
     Active Substance: DENOSUMAB
     Indication: OSTEOPOROSIS
     Dosage: 60 MILLIGRAM, 2 YEARS
     Route: 058
     Dates: start: 20151126, end: 20191126
  7. ENALAPRIL [Concomitant]
     Active Substance: ENALAPRIL
     Indication: HYPERTENSIVE HEART DISEASE
     Dosage: 5 MILLIGRAM, BID
     Route: 048

REACTIONS (2)
  - Femur fracture [Unknown]
  - Treatment failure [Unknown]

NARRATIVE: CASE EVENT DATE: 20200228
